FAERS Safety Report 11486466 (Version 2)
Quarter: 2015Q4

REPORT INFORMATION
  Report Type: Spontaneous
  Country: US (occurrence: US)
  Receive Date: 20150910
  Receipt Date: 20151111
  Transmission Date: 20160304
  Serious: No
  Sender: FDA-Public Use
  Company Number: US-ASTRAZENECA-2013SE78629

PATIENT
  Age: 68 Year
  Sex: Male
  Weight: 83.9 kg

DRUGS (9)
  1. HUMALOG [Suspect]
     Active Substance: INSULIN LISPRO
     Route: 065
  2. TYLENOL [Concomitant]
     Active Substance: ACETAMINOPHEN
     Indication: HEADACHE
  3. BYDUREON [Suspect]
     Active Substance: EXENATIDE
     Indication: TYPE 1 DIABETES MELLITUS
     Route: 058
     Dates: start: 20131011, end: 201312
  4. BYETTA [Suspect]
     Active Substance: EXENATIDE
     Indication: TYPE 2 DIABETES MELLITUS
     Dosage: 0.25 MG/ML, TWO TIMES A DAY
     Route: 058
     Dates: start: 2005
  5. BYETTA [Suspect]
     Active Substance: EXENATIDE
     Indication: TYPE 2 DIABETES MELLITUS
     Route: 058
  6. METFORMIN HYDROCHLORIDE. [Suspect]
     Active Substance: METFORMIN HYDROCHLORIDE
     Indication: TYPE 2 DIABETES MELLITUS
     Dosage: 1000 MG,TWO TIMES A DAY NON AZ PRODUCT
     Route: 048
  7. LANTUS [Suspect]
     Active Substance: INSULIN GLARGINE
     Indication: TYPE 2 DIABETES MELLITUS
     Route: 065
  8. BYDUREON [Suspect]
     Active Substance: EXENATIDE
     Indication: TYPE 1 DIABETES MELLITUS
     Route: 058
  9. LANTUS [Suspect]
     Active Substance: INSULIN GLARGINE
     Indication: TYPE 2 DIABETES MELLITUS
     Route: 065

REACTIONS (16)
  - Pain in extremity [Unknown]
  - Circumstance or information capable of leading to medication error [Unknown]
  - Arthralgia [Unknown]
  - Nausea [Unknown]
  - Vomiting [Unknown]
  - Asthenia [Unknown]
  - Hypophagia [Not Recovered/Not Resolved]
  - Sleep disorder [Not Recovered/Not Resolved]
  - Product quality issue [Unknown]
  - Injection site mass [Not Recovered/Not Resolved]
  - Pain [Not Recovered/Not Resolved]
  - Needle issue [Unknown]
  - Expired product administered [Recovered/Resolved]
  - Blood glucose increased [Unknown]
  - Decreased appetite [Not Recovered/Not Resolved]
  - Injection site swelling [Unknown]
